FAERS Safety Report 7106286-7 (Version None)
Quarter: 2010Q4

REPORT INFORMATION
  Report Type: 
  Country: None (occurrence: None)
  Receive Date: 20101116
  Receipt Date: 20101105
  Transmission Date: 20110411
  Serious: Yes (Disabling)
  Sender: FDA-Public Use
  Company Number: PHHO2010ES14880

PATIENT
  Sex: Female

DRUGS (3)
  1. FTY 720 FTY+CAP [Suspect]
     Indication: MULTIPLE SCLEROSIS
     Dosage: DOSE BLINDED
     Route: 048
     Dates: start: 20040903, end: 20100209
  2. FTY 720 FTY+CAP [Suspect]
     Dosage: 0.5 MG
     Route: 048
     Dates: start: 20100210, end: 20100929
  3. ESCITALOPRAM OXALATE [Concomitant]
     Indication: DEPRESSION
     Dosage: UNK
     Dates: start: 20080924, end: 20100802

REACTIONS (5)
  - MACULAR OEDEMA [None]
  - RETINAL HAEMORRHAGE [None]
  - RETINAL VEIN THROMBOSIS [None]
  - SCOTOMA [None]
  - VISUAL ACUITY REDUCED [None]
